FAERS Safety Report 9250639 (Version 1)
Quarter: 2013Q2

REPORT INFORMATION
  Report Type: Spontaneous
  Country: US (occurrence: US)
  Receive Date: 20130424
  Receipt Date: 20130424
  Transmission Date: 20140414
  Serious: Yes (Other)
  Sender: FDA-Public Use
  Company Number: US-SANOFI-AVENTIS-2013SA042205

PATIENT
  Age: 67 Year
  Sex: Female

DRUGS (1)
  1. AMARYL [Suspect]
     Indication: DIABETES MELLITUS
     Dosage: START DATE: ABOUT 4 OR MORE YEARS
     Route: 065

REACTIONS (2)
  - Renal failure [Unknown]
  - Blood glucose abnormal [Not Recovered/Not Resolved]
